FAERS Safety Report 10213509 (Version 1)
Quarter: 2014Q2

REPORT INFORMATION
  Report Type: Spontaneous
  Country: BR (occurrence: BR)
  Receive Date: 20140603
  Receipt Date: 20140603
  Transmission Date: 20141212
  Serious: Yes (Hospitalization)
  Sender: FDA-Public Use
  Company Number: BR-SA-2014SA067013

PATIENT
  Sex: Female
  Weight: 80 kg

DRUGS (15)
  1. LANTUS [Suspect]
     Indication: DIABETES MELLITUS
     Route: 058
     Dates: start: 2008
  2. CLIKSTAR [Concomitant]
     Indication: DEVICE THERAPY
  3. DIAZEPAM [Concomitant]
     Indication: SLEEP DISORDER
     Route: 048
  4. MONOCOR [Concomitant]
     Route: 048
  5. CONCOR [Concomitant]
     Indication: CARDIAC DISORDER
     Dosage: CONCOR(BISOPROLOL FUMARATE)2.5 MG
     Route: 048
  6. TRIMEBUTINE [Concomitant]
     Indication: GASTROINTESTINAL DISORDER
     Route: 048
  7. LASIX [Concomitant]
     Indication: ILL-DEFINED DISORDER
     Route: 048
  8. ALDOMET [Concomitant]
     Route: 048
  9. DIOVAN [Concomitant]
     Route: 048
  10. VASTAREL [Concomitant]
     Route: 048
  11. ALDACTONE [Concomitant]
     Route: 048
  12. MONOCORDIL [Concomitant]
     Route: 048
  13. DOMPERIDONE [Concomitant]
     Route: 048
  14. MAREVAN [Concomitant]
     Route: 048
  15. PURAN T4 [Concomitant]
     Indication: HYPOTHYROIDISM
     Dosage: PURAN T4(LEVOTHYROXINE SODIUM) 100 MCG
     Route: 048

REACTIONS (2)
  - Hypertension [Recovered/Resolved]
  - Cough [Recovered/Resolved]
